FAERS Safety Report 4548199-0 (Version None)
Quarter: 2005Q1

REPORT INFORMATION
  Report Type: 
  Country: None (occurrence: None)
  Receive Date: 20050105
  Receipt Date: 20050105
  Transmission Date: 20050727
  Serious: No
  Sender: FDA-Public Use
  Company Number: None

PATIENT
  Age: 78 Year
  Sex: Male
  Weight: 74.3 kg

DRUGS (3)
  1. NAPROXEN [Suspect]
     Indication: SINUS HEADACHE
     Dosage: 375MG, BID, ORAL
     Route: 048
     Dates: start: 20041005, end: 20041018
  2. NAPROXEN [Suspect]
     Indication: SINUSITIS
     Dosage: 375MG, BID, ORAL
     Route: 048
     Dates: start: 20041005, end: 20041018
  3. TOBRAMYCIN [Concomitant]

REACTIONS (1)
  - NEPHROPATHY TOXIC [None]
